FAERS Safety Report 11317748 (Version 1)
Quarter: 2015Q3

REPORT INFORMATION
  Report Type: Report from Study
  Country: US (occurrence: US)
  Receive Date: 20150728
  Receipt Date: 20150728
  Transmission Date: 20151125
  Serious: Yes (Other)
  Sender: FDA-Public Use
  Company Number: US-GILEAD-2015-0164410

PATIENT
  Age: 42 Year
  Sex: Female

DRUGS (1)
  1. AZTREONAM LYSINE [Suspect]
     Active Substance: AZTREONAM LYSINE
     Indication: PRODUCT USED FOR UNKNOWN INDICATION
     Dosage: 75 MG, UNK
     Route: 055
     Dates: start: 20150415

REACTIONS (2)
  - Off label use [Not Recovered/Not Resolved]
  - Lung transplant [Unknown]

NARRATIVE: CASE EVENT DATE: 20150415
